FAERS Safety Report 5252277-0 (Version None)
Quarter: 2007Q1

REPORT INFORMATION
  Report Type: 
  Country: None (occurrence: None)
  Receive Date: 20070227
  Receipt Date: 20070125
  Transmission Date: 20070707
  Serious: Yes (Hospitalization)
  Sender: FDA-Public Use
  Company Number: WAES 0612BRA00063

PATIENT
  Age: 68 Year
  Sex: Female

DRUGS (14)
  1. FOSAMAX [Suspect]
     Indication: OSTEOPOROSIS
     Dosage: 10 MG/DAILY PO
     Route: 048
     Dates: start: 20040423
  2. INJ PLACEBO (UNSPECIFIED) [Suspect]
     Indication: OSTEOPOROSIS
     Dosage: 10 MG/DAILY SC
     Route: 058
     Dates: start: 20040422
  3. CARBAMAZEPINE [Concomitant]
  4. CEFEPIME [Concomitant]
  5. CHLOROQUINE [Concomitant]
  6. DEXAMETHASONE [Concomitant]
  7. DIAZEPAM [Concomitant]
  8. LEVOTHYROXINE SODIUM [Concomitant]
  9. METHOTREXATE [Concomitant]
  10. METHYLPREDNISOLONE 16MG TAB [Concomitant]
  11. MORPHINE [Concomitant]
  12. OMEPRAZOLE [Concomitant]
  13. PREDNISONE [Concomitant]
  14. RANITIDINE [Concomitant]

REACTIONS (8)
  - BLOOD UREA INCREASED [None]
  - DECUBITUS ULCER [None]
  - HAEMOGLOBIN DECREASED [None]
  - HYPONATRAEMIA [None]
  - INAPPROPRIATE ANTIDIURETIC HORMONE SECRETION [None]
  - INTERSTITIAL LUNG DISEASE [None]
  - PLATELET COUNT INCREASED [None]
  - PNEUMONIA [None]
